FAERS Safety Report 6142488-4 (Version None)
Quarter: 2009Q2

REPORT INFORMATION
  Report Type: 
  Country: None (occurrence: None)
  Receive Date: 20090403
  Receipt Date: 20090325
  Transmission Date: 20091009
  Serious: Yes (Hospitalization)
  Sender: FDA-Public Use
  Company Number: AU-BRISTOL-MYERS SQUIBB COMPANY-13810783

PATIENT
  Age: 29 Year
  Sex: Male

DRUGS (1)
  1. ABATACEPT [Suspect]
     Indication: CROHN'S DISEASE
     Dosage: NO OF COURSES: 4
     Route: 042
     Dates: start: 20070620

REACTIONS (3)
  - ANAL ABSCESS [None]
  - DIARRHOEA [None]
  - PROCTALGIA [None]
